FAERS Safety Report 9100896 (Version 2)
Quarter: 2013Q1

REPORT INFORMATION
  Report Type: Spontaneous
  Country: US (occurrence: US)
  Receive Date: 20130215
  Receipt Date: 20130311
  Transmission Date: 20140127
  Serious: Yes (Death)
  Sender: FDA-Public Use
  Company Number: PHEH2013US003679

PATIENT
  Age: 92 Year
  Sex: Female
  Weight: 57 kg

DRUGS (7)
  1. RECLAST [Suspect]
     Indication: OSTEOPOROTIC FRACTURE
     Dosage: 5 MG/ 100 ML
     Route: 042
     Dates: start: 20120204
  2. GLYBURIDE [Concomitant]
     Indication: DIABETES MELLITUS
     Dosage: 5 MG, BID TWO TAB
     Route: 048
  3. LEVOTHYROXINE [Concomitant]
     Indication: HORMONE REPLACEMENT THERAPY
     Dosage: 0.65 MG, UNK
     Route: 048
  4. OXYBUTYNIN [Concomitant]
     Indication: BLADDER DISORDER
     Dosage: 5 MG, BID
     Route: 048
  5. SIMVASTATIN [Concomitant]
     Indication: BLOOD CHOLESTEROL INCREASED
     Dosage: 40 MG, UNK
     Route: 048
  6. METOPROLOL TARTRATE [Concomitant]
     Indication: HYPERTENSION
     Dosage: 50 MG, UNK
     Route: 048
  7. FORTEO [Concomitant]

REACTIONS (2)
  - Death [Fatal]
  - Glomerular filtration rate decreased [Unknown]
